FAERS Safety Report 8180871-6 (Version None)
Quarter: 2012Q1

REPORT INFORMATION
  Report Type: 
  Country: None (occurrence: None)
  Receive Date: 20120302
  Receipt Date: 20120229
  Transmission Date: 20120608
  Serious: Yes (Life-Threatening, Hospitalization)
  Sender: FDA-Public Use
  Company Number: PL-B.I. PHARMACEUTICALS,INC./RIDGEFIELD-2011-DE-00761DE

PATIENT
  Sex: Female
  Weight: 109 kg

DRUGS (14)
  1. LOSARTAN POTASSIUM [Concomitant]
     Indication: HYPERTENSION
     Dosage: 50 MG
     Route: 048
     Dates: start: 20090623, end: 20101206
  2. CHLORTHALIDONE [Concomitant]
     Indication: HYPERTENSION
     Dosage: 50 MG
     Route: 048
     Dates: start: 20070627, end: 20101206
  3. PIRACETAM [Concomitant]
     Indication: CEREBROVASCULAR ACCIDENT
     Dosage: 1200 MG
     Route: 048
     Dates: start: 20060101
  4. RAMIPRIL [Concomitant]
     Indication: HYPERTENSION
     Dosage: 10 MG
     Route: 048
     Dates: start: 20060101, end: 20101206
  5. POTASSIUM CHLORIDE [Concomitant]
     Indication: HYPERTENSION
     Dosage: 315 MG
     Route: 048
     Dates: start: 20060101
  6. LACIDIPINE [Concomitant]
     Indication: HYPERTENSION
     Dosage: 4 MG
     Route: 048
     Dates: start: 20060101
  7. BISOPROLOL FUMARATE [Concomitant]
     Indication: ATRIAL FIBRILLATION
     Dosage: 10 MG
     Route: 048
     Dates: start: 20090203
  8. LEVOTHYROXINE SODIUM [Concomitant]
     Indication: HYPOTHYROIDISM
     Dosage: 150 MCG
     Route: 048
     Dates: start: 20060101
  9. DABIGATRAN [Suspect]
     Indication: CEREBROVASCULAR ACCIDENT PROPHYLAXIS
     Route: 048
     Dates: start: 20090224, end: 20101206
  10. INSULINE [Concomitant]
     Indication: DIABETES MELLITUS
     Dosage: 70 U
     Route: 058
     Dates: start: 20060101
  11. DABIGATRAN [Suspect]
     Indication: ATRIAL FIBRILLATION
  12. GLIQUIDONE [Concomitant]
     Indication: DIABETES MELLITUS
     Dosage: 2 MG
     Route: 048
     Dates: start: 20090203, end: 20101206
  13. ATORVASTATINUM [Concomitant]
     Indication: HYPERLIPIDAEMIA
     Dosage: 20 MG
     Route: 048
     Dates: start: 20101103
  14. AMIODARONE HCL [Concomitant]
     Indication: ATRIAL FIBRILLATION
     Dosage: 200 MG
     Route: 048
     Dates: start: 20090203

REACTIONS (6)
  - BLOOD GLUCAGON ABNORMAL [None]
  - HEMIPARESIS [None]
  - APHASIA [None]
  - EPISTAXIS [None]
  - ISCHAEMIC STROKE [None]
  - URINARY TRACT INFECTION [None]
